FAERS Safety Report 4466713-0 (Version None)
Quarter: 2004Q4

REPORT INFORMATION
  Report Type: 
  Country: None (occurrence: None)
  Receive Date: 20041001
  Receipt Date: 20041001
  Transmission Date: 20050328
  Serious: Yes (Hospitalization)
  Sender: FDA-Public Use
  Company Number: None

PATIENT
  Age: 57 Year
  Sex: Female
  Weight: 81.6475 kg

DRUGS (1)
  1. VIOXX [Suspect]
     Indication: RHEUMATOID ARTHRITIS
     Dosage: 1 TABLET  DAILY  ORAL
     Route: 048
     Dates: start: 20000401, end: 20040713

REACTIONS (2)
  - DRUG TOXICITY [None]
  - RENAL FAILURE [None]
